FAERS Safety Report 7766095-2 (Version None)
Quarter: 2011Q3

REPORT INFORMATION
  Report Type: 
  Country: None (occurrence: None)
  Receive Date: 20110921
  Receipt Date: 20110913
  Transmission Date: 20111222
  Serious: Yes (Other)
  Sender: FDA-Public Use
  Company Number: CN-ASTRAZENECA-2011SE54687

PATIENT
  Sex: Female

DRUGS (4)
  1. MORPHINE [Suspect]
     Indication: POSTOPERATIVE ANALGESIA
     Dosage: 5MG/100ML
     Route: 065
  2. ROPIVACAINE HYDROCHLORIDE [Suspect]
     Dosage: 10MG/100ML
     Route: 065
  3. ROPIVACAINE HYDROCHLORIDE [Suspect]
     Indication: POSTOPERATIVE ANALGESIA
     Route: 065
  4. SALINE [Concomitant]
     Indication: POSTOPERATIVE ANALGESIA
     Route: 065

REACTIONS (1)
  - RESPIRATORY DEPRESSION [None]
